FAERS Safety Report 6465636-5 (Version None)
Quarter: 2009Q4

REPORT INFORMATION
  Report Type: 
  Country: None (occurrence: None)
  Receive Date: 20091124
  Receipt Date: 20091109
  Transmission Date: 20100525
  Serious: Yes (Other)
  Sender: FDA-Public Use
  Company Number: 002383

PATIENT
  Sex: Female
  Weight: 75 kg

DRUGS (2)
  1. VIMPAT [Suspect]
     Indication: EPILEPSY
     Dosage: (150 MG BID), (50 MG BID ORAL)
     Route: 048
     Dates: start: 20090812, end: 20091013
  2. LAMOTRIGINE [Concomitant]

REACTIONS (1)
  - WEIGHT INCREASED [None]
